FAERS Safety Report 14877303 (Version 1)
Quarter: 2018Q2

REPORT INFORMATION
  Report Type: Spontaneous
  Country: CA (occurrence: CA)
  Receive Date: 20180510
  Receipt Date: 20180510
  Transmission Date: 20180711
  Serious: Yes (Other)
  Sender: FDA-Public Use
  Company Number: CA-SUNOVION-2018SUN001868

PATIENT
  Age: 20 Year
  Sex: Female
  Weight: 62.13 kg

DRUGS (4)
  1. LATUDA [Suspect]
     Active Substance: LURASIDONE HYDROCHLORIDE
     Indication: BIPOLAR DISORDER
     Dosage: 40 MG, QD
     Route: 048
  2. PROMETRIUM [Concomitant]
     Active Substance: PROGESTERONE
  3. ESTRACE [Concomitant]
     Active Substance: ESTRADIOL
  4. RAMIPRIL. [Concomitant]
     Active Substance: RAMIPRIL

REACTIONS (8)
  - Intentional overdose [Unknown]
  - Weight increased [Unknown]
  - Suicidal ideation [Unknown]
  - Emotional poverty [Unknown]
  - Flat affect [Unknown]
  - Gambling disorder [Unknown]
  - Compulsions [Unknown]
  - Hyperphagia [Unknown]
